FAERS Safety Report 22186540 (Version 1)
Quarter: 2023Q2

REPORT INFORMATION
  Report Type: Spontaneous
  Country: US (occurrence: None)
  Receive Date: 20230407
  Receipt Date: 20230407
  Transmission Date: 20230721
  Serious: Yes (Other)
  Sender: FDA-Public Use
  Company Number: None

PATIENT
  Age: 63 Year
  Sex: Male
  Weight: 91.8 kg

DRUGS (36)
  1. METHYLPHENIDATE HYDROCHLORIDE [Suspect]
     Active Substance: METHYLPHENIDATE HYDROCHLORIDE
     Indication: Attention deficit hyperactivity disorder
  2. Patriot extended release [Concomitant]
  3. METHYLPHENIDATE HYDROCHLORIDE [Concomitant]
     Active Substance: METHYLPHENIDATE HYDROCHLORIDE
  4. Flexeril cyclobenzaprine [Concomitant]
  5. Generic Xopenex HFA (Levosalbutamol) [Concomitant]
  6. Clindamycin Phosphate Topical Gel [Concomitant]
  7. FINASTERIDE [Concomitant]
     Active Substance: FINASTERIDE
  8. LIOTHYRONINE SODIUM [Concomitant]
     Active Substance: LIOTHYRONINE SODIUM
  9. Tirosint (dye-free levothyroxine capsules) [Concomitant]
  10. Amazing Formulas NAC [Concomitant]
  11. ACETYLCYSTEINE [Concomitant]
     Active Substance: ACETYLCYSTEINE
  12. NatureBell Alpha Lipoic Acid [Concomitant]
  13. Carlyle Licorice Root Capsules NOW Supplements [Concomitant]
  14. OMEGA-3 ACIDS [Concomitant]
     Active Substance: OMEGA-3 FATTY ACIDS
  15. Enteric Coated NatureBell St John^s Wort Supplement [Concomitant]
  16. Puritans^s Pride Milk Thistle [Concomitant]
  17. Zebora CoQ10 (Ubiquinone) with PQQ [Concomitant]
  18. OMEGA-3 ACIDS [Concomitant]
     Active Substance: OMEGA-3 FATTY ACIDS
  19. PRASTERONE [Concomitant]
     Active Substance: PRASTERONE
  20. Carlyle Chanca Piedra [Concomitant]
  21. Monoherb Magnesium Lactate [Concomitant]
  22. Nature^s Bounty Vitamin B6 [Concomitant]
  23. Best Naturals Pregnenolone [Concomitant]
  24. Calcium D-Glucarate [Concomitant]
  25. Nutricost Zeaxanthin with Lutein [Concomitant]
  26. Nature^s Bounty Zinc [Concomitant]
  27. Horbaach Vitamin B-100 Complex [Concomitant]
  28. Carlyle Vitamin C with Rose Hips [Concomitant]
  29. Bronson Vitamin A [Concomitant]
  30. Healthy Origins Pantothenic Acid [Concomitant]
  31. Best Naturals L-Lysine [Concomitant]
  32. Horbaach Liquid Iodine Solution [Concomitant]
  33. Swanson Vitamin E [Concomitant]
  34. TOCOPHEROL [Concomitant]
     Active Substance: TOCOPHEROL
  35. Nutricost Organic Chlorella [Concomitant]
  36. Magnesium Orotate Tablets [Concomitant]

REACTIONS (7)
  - Product substitution issue [None]
  - Cold sweat [None]
  - Palpitations [None]
  - Panic attack [None]
  - Dizziness [None]
  - Dry mouth [None]
  - Manufacturing issue [None]

NARRATIVE: CASE EVENT DATE: 20210623
